FAERS Safety Report 13581800 (Version 3)
Quarter: 2019Q1

REPORT INFORMATION
  Report Type: Spontaneous
  Country: US (occurrence: US)
  Receive Date: 20170525
  Receipt Date: 20190315
  Transmission Date: 20190417
  Serious: Yes (Hospitalization, Other)
  Sender: FDA-Public Use
  Company Number: US-MYLANLABS-2017M1030866

PATIENT
  Sex: Male
  Weight: 68 kg

DRUGS (5)
  1. LISINOPRIL. [Concomitant]
     Active Substance: LISINOPRIL
     Indication: HYPERTENSION
     Dosage: 40 MG, QD
     Route: 048
  2. REMERON [Concomitant]
     Active Substance: MIRTAZAPINE
     Indication: SCHIZOAFFECTIVE DISORDER BIPOLAR TYPE
     Dosage: 45 MG, QD
  3. AMLODIPINE BESYLATE. [Concomitant]
     Active Substance: AMLODIPINE BESYLATE
     Indication: HYPERTENSION
     Dosage: 10 MG, QD
     Route: 048
  4. RISPERIDONE TABLETS, USP [Suspect]
     Active Substance: RISPERIDONE
     Indication: SCHIZOAFFECTIVE DISORDER BIPOLAR TYPE
     Dosage: 2 MG, BID
     Route: 048
     Dates: start: 2009
  5. RISPERIDONE. [Suspect]
     Active Substance: RISPERIDONE
     Indication: SCHIZOAFFECTIVE DISORDER BIPOLAR TYPE
     Dosage: 4 MG, QD
     Route: 048

REACTIONS (11)
  - Gynaecomastia [Recovered/Resolved]
  - Weight increased [Recovering/Resolving]
  - Hypertension [Recovered/Resolved]
  - Onychomycosis [Unknown]
  - Chest pain [Not Recovered/Not Resolved]
  - Hyperhidrosis [Recovered/Resolved]
  - Breast discharge [Recovered/Resolved]
  - Hypertriglyceridaemia [Unknown]
  - Constipation [Not Recovered/Not Resolved]
  - Blood prolactin increased [Recovered/Resolved]
  - Insomnia [Unknown]

NARRATIVE: CASE EVENT DATE: 2009
